FAERS Safety Report 5742408-8 (Version None)
Quarter: 2008Q2

REPORT INFORMATION
  Report Type: 
  Country: None (occurrence: None)
  Receive Date: 20080519
  Receipt Date: 20080319
  Transmission Date: 20081010
  Serious: Yes (Hospitalization)
  Sender: FDA-Public Use
  Company Number: PT-JNJFOC-20080304754

PATIENT
  Sex: Male
  Weight: 72 kg

DRUGS (6)
  1. PREZISTA [Suspect]
     Route: 048
  2. PREZISTA [Suspect]
     Indication: HIV INFECTION
     Route: 048
  3. TRUVADA [Concomitant]
     Indication: HIV INFECTION
     Route: 048
  4. RITONAVIR [Concomitant]
     Indication: HIV INFECTION
     Route: 048
  5. ENFUVIRTIDE [Concomitant]
     Indication: HIV INFECTION
     Route: 058
  6. COTRIM [Concomitant]
     Route: 048

REACTIONS (1)
  - PANCREATITIS [None]
